FAERS Safety Report 10759802 (Version 2)
Quarter: 2015Q1

REPORT INFORMATION
  Report Type: Spontaneous
  Country: PE (occurrence: PE)
  Receive Date: 20150203
  Receipt Date: 20150212
  Transmission Date: 20150721
  Serious: Yes (Death)
  Sender: FDA-Public Use
  Company Number: PHHY2015PE012836

PATIENT
  Sex: Male

DRUGS (1)
  1. EVEROLIMUS [Suspect]
     Active Substance: EVEROLIMUS
     Indication: LYMPHOMA
     Dosage: 4.5 MG, QD (0.75X6 TAB DAILY)
     Route: 065

REACTIONS (2)
  - Lymphoma [Fatal]
  - Product use issue [Unknown]
